FAERS Safety Report 4442640-X (Version None)
Quarter: 2004Q3

REPORT INFORMATION
  Report Type: 
  Country: None (occurrence: None)
  Receive Date: 20040903
  Receipt Date: 20040625
  Transmission Date: 20050211
  Serious: Yes (Other)
  Sender: FDA-Public Use
  Company Number: 2004UW11776

PATIENT
  Age: 69 Year
  Sex: Female
  Weight: 90.2658 kg

DRUGS (11)
  1. CRESTOR [Suspect]
     Indication: BLOOD CHOLESTEROL INCREASED
     Dosage: 10 MG QOD PO
     Route: 048
     Dates: start: 20040401
  2. METHADONE HCL [Concomitant]
  3. SOMA [Concomitant]
  4. TYLOX [Concomitant]
  5. OGEN [Concomitant]
  6. KLONOPIN [Concomitant]
  7. PREVACID [Concomitant]
  8. MULTI-VITAMINS [Concomitant]
  9. VITAMIN B6 [Concomitant]
  10. CHOLESTEROL LOWERING VITAMINS [Concomitant]
  11. TEMAZEPAM [Concomitant]

REACTIONS (9)
  - ANOREXIA [None]
  - DEPRESSION [None]
  - DYSURIA [None]
  - FEELING ABNORMAL [None]
  - MALAISE [None]
  - MUSCLE SPASMS [None]
  - NODULE [None]
  - OSTEOPENIA [None]
  - TREMOR [None]
